FAERS Safety Report 8980708 (Version 1)
Quarter: 2012Q4

REPORT INFORMATION
  Report Type: Report from Study
  Country: US (occurrence: US)
  Receive Date: 20121221
  Receipt Date: 20121221
  Transmission Date: 20130627
  Serious: Yes (Hospitalization, Other)
  Sender: FDA-Public Use
  Company Number: US-JNJFOC-20121205280

PATIENT
  Age: 59 Year
  Sex: Female
  Weight: 67.13 kg

DRUGS (6)
  1. REMICADE [Suspect]
     Indication: RHEUMATOID ARTHRITIS
     Dosage: early 2000s
     Route: 042
  2. REMICADE [Suspect]
     Indication: SJOGREN^S SYNDROME
     Dosage: early 2000s
     Route: 042
  3. CIPROFLOXACIN [Suspect]
     Indication: URINARY TRACT INFECTION
     Route: 065
     Dates: start: 2012, end: 2012
  4. NEXIUM [Concomitant]
     Indication: GASTROOESOPHAGEAL REFLUX DISEASE
     Route: 065
  5. PREDNISONE [Concomitant]
     Indication: RHEUMATOID ARTHRITIS
     Dosage: On an unspecified date, the patient^s dose was reduced to 5 mg per day
     Route: 048
  6. CLARITIN [Concomitant]
     Indication: MULTIPLE ALLERGIES
     Route: 065

REACTIONS (22)
  - Road traffic accident [Recovered/Resolved]
  - Lower limb fracture [Recovered/Resolved]
  - Spinal fracture [Recovered/Resolved]
  - Clavicle fracture [Recovered/Resolved]
  - Pelvic fracture [Recovered/Resolved]
  - Head injury [Recovered/Resolved]
  - Decubitus ulcer [Recovered/Resolved]
  - Depression [Not Recovered/Not Resolved]
  - Retching [Not Recovered/Not Resolved]
  - Increased upper airway secretion [Not Recovered/Not Resolved]
  - Choking [Not Recovered/Not Resolved]
  - Sinus congestion [Not Recovered/Not Resolved]
  - Lymphadenopathy [Not Recovered/Not Resolved]
  - Urinary tract infection [Not Recovered/Not Resolved]
  - Pneumonia bacterial [Recovered/Resolved]
  - Ear pain [Not Recovered/Not Resolved]
  - Upper-airway cough syndrome [Not Recovered/Not Resolved]
  - Stomatitis [Not Recovered/Not Resolved]
  - Chills [Not Recovered/Not Resolved]
  - Fatigue [Not Recovered/Not Resolved]
  - Pyrexia [Not Recovered/Not Resolved]
  - Hypertension [Unknown]
